FAERS Safety Report 18079140 (Version 2)
Quarter: 2020Q3

REPORT INFORMATION
  Report Type: Spontaneous
  Country: US (occurrence: US)
  Receive Date: 20200728
  Receipt Date: 20200911
  Transmission Date: 20201103
  Serious: Yes (Disabling, Other)
  Sender: FDA-Public Use
  Company Number: US-REGENERON PHARMACEUTICALS, INC.-2020-51783

PATIENT

DRUGS (1)
  1. EYLEA [Suspect]
     Active Substance: AFLIBERCEPT
     Indication: NEOVASCULAR AGE-RELATED MACULAR DEGENERATION
     Dosage: RIGHT EYE, EVERY 4 WEEKS
     Route: 031
     Dates: start: 20200427, end: 20200624

REACTIONS (3)
  - Eye inflammation [Not Recovered/Not Resolved]
  - Wrong technique in product usage process [Unknown]
  - Blindness transient [Not Recovered/Not Resolved]

NARRATIVE: CASE EVENT DATE: 20200626
